FAERS Safety Report 6118177-9 (Version None)
Quarter: 2009Q1

REPORT INFORMATION
  Report Type: 
  Country: None (occurrence: None)
  Receive Date: 20090314
  Receipt Date: 20090205
  Transmission Date: 20090719
  Serious: No
  Sender: FDA-Public Use
  Company Number: US-ABBOTT-09P-163-0502390-00

PATIENT
  Sex: Male

DRUGS (2)
  1. HUMIRA [Suspect]
     Indication: PSORIASIS
     Route: 058
     Dates: start: 20090107, end: 20090107
  2. HUMIRA [Suspect]
     Route: 058
     Dates: start: 20090115, end: 20090129

REACTIONS (2)
  - HEADACHE [None]
  - PSORIASIS [None]
